FAERS Safety Report 21164557 (Version 1)
Quarter: 2022Q3

REPORT INFORMATION
  Report Type: Spontaneous
  Country: US (occurrence: US)
  Receive Date: 20220803
  Receipt Date: 20220803
  Transmission Date: 20221026
  Serious: Yes (Hospitalization, Disabling, Other)
  Sender: FDA-Public Use
  Company Number: US-MLMSERVICE-20220714-3677794-1

PATIENT
  Age: 69 Year
  Sex: Female

DRUGS (2)
  1. METHYLPREDNISOLONE [Suspect]
     Active Substance: METHYLPREDNISOLONE
     Indication: Steroid therapy
     Dosage: 2 DOSAGE FORM, TOTAL (AT L4-L5 AND L5-S1)
     Route: 008
  2. LIDOCAINE [Concomitant]
     Active Substance: LIDOCAINE
     Indication: Product used for unknown indication
     Dosage: 2 DOSAGE FORM, TOTAL (AT L4-L5 AND L5-S1)
     Route: 008

REACTIONS (4)
  - Injection related reaction [Not Recovered/Not Resolved]
  - Injury [Not Recovered/Not Resolved]
  - Spinal stroke [Not Recovered/Not Resolved]
  - Vertebral artery occlusion [Not Recovered/Not Resolved]
